FAERS Safety Report 9280695 (Version 10)
Quarter: 2014Q1

REPORT INFORMATION
  Report Type: Spontaneous
  Country: GB (occurrence: None)
  Receive Date: 20130503
  Receipt Date: 20140224
  Transmission Date: 20141002
  Serious: Yes (Hospitalization)
  Sender: FDA-Public Use
  Company Number: AUR-APL-2013-03497

PATIENT
  Age: 75 Year
  Sex: Male
  Weight: 81 kg

DRUGS (9)
  1. RAMIPRIL (RAMIPRIL) [Suspect]
     Indication: PRODUCT USED FOR UNKNOWN INDICATION
     Route: 048
  2. TAMSULOSIN (TAMSULOSIN) [Suspect]
     Indication: PRODUCT USED FOR UNKNOWN INDICATION
     Dosage: 10 MG (10 MG, 1 IN 1 D) , ORAL
     Route: 048
  3. OMEPRAZOLE (OMEPRAZOLE) [Suspect]
     Indication: PRODUCT USED FOR UNKNOWN INDICATION
     Route: 048
  4. AMLODIPINE (AMLODIPINE) [Concomitant]
  5. ATORVASTATIN (ATORVASTATIN) [Concomitant]
  6. DOCETAXEL (DOCETAXEL)? [Concomitant]
  7. MIRTAZAPINE (MIRTAZAPINE) [Concomitant]
  8. TIMOLOL (TIMOLOL) (NONE) [Concomitant]
  9. ZOLADEX (GOSERELIN) [Concomitant]

REACTIONS (6)
  - Febrile neutropenia [None]
  - Diarrhoea [None]
  - Haemoglobin decreased [None]
  - Red blood cell sedimentation rate increased [None]
  - White blood cell count decreased [None]
  - Neutrophil count decreased [None]
